FAERS Safety Report 15452093 (Version 1)
Quarter: 2018Q4

REPORT INFORMATION
  Report Type: Spontaneous
  Country: HR (occurrence: HR)
  Receive Date: 20181001
  Receipt Date: 20181001
  Transmission Date: 20190204
  Serious: Yes (Hospitalization)
  Sender: FDA-Public Use
  Company Number: HR-PFIZER INC-2018389497

PATIENT
  Age: 68 Year
  Sex: Male
  Weight: 77 kg

DRUGS (11)
  1. KALINOR [CITRIC ACID;POTASSIUM BICARBONATE;POTASSIUM CITRATE] [Concomitant]
  2. TAMSU [Concomitant]
     Active Substance: TAMSULOSIN HYDROCHLORIDE
  3. SEVREDOL [Concomitant]
     Active Substance: MORPHINE
  4. ALDACTONE [Concomitant]
     Active Substance: SPIRONOLACTONE
  5. ACETYLSALICYLIC ACID [Concomitant]
     Active Substance: ASPIRIN
  6. TRANSTEC [Concomitant]
     Active Substance: BUPRENORPHINE
  7. CONTROLOC [PANTOPRAZOLE SODIUM SESQUIHYDRATE] [Concomitant]
  8. CONCOR [Concomitant]
     Active Substance: BISOPROLOL FUMARATE
  9. SUTENT [Suspect]
     Active Substance: SUNITINIB MALATE
     Indication: RENAL CANCER
     Dosage: 50 MG, 1X/DAY
     Route: 048
     Dates: start: 20180510, end: 20180706
  10. ALOPURINOL [Concomitant]
     Active Substance: ALLOPURINOL
  11. EDEMID [Concomitant]
     Active Substance: FUROSEMIDE

REACTIONS (3)
  - Congestive cardiomyopathy [Recovered/Resolved with Sequelae]
  - Exercise tolerance decreased [Recovered/Resolved with Sequelae]
  - Dyspnoea [Recovered/Resolved with Sequelae]

NARRATIVE: CASE EVENT DATE: 20180527
